FAERS Safety Report 4713749-8 (Version None)
Quarter: 2005Q3

REPORT INFORMATION
  Report Type: 
  Country: None (occurrence: None)
  Receive Date: 20050713
  Receipt Date: 20050629
  Transmission Date: 20060218
  Serious: Yes (Hospitalization, Other)
  Sender: FDA-Public Use
  Company Number: DE-MERCK-0506DEU00242

PATIENT
  Age: 6 Year
  Sex: Male

DRUGS (6)
  1. SINGULAIR [Suspect]
     Route: 048
     Dates: start: 20050501, end: 20050627
  2. AMBROXOL HYDROCHLORIDE [Concomitant]
     Route: 065
  3. HOMEOPATHIC MEDICATIONS (UNSPECIFIED) [Concomitant]
     Route: 065
  4. CROMOLYN SODIUM [Concomitant]
     Route: 065
  5. CROMOLYN SODIUM [Concomitant]
     Route: 047
  6. CROMOLYN SODIUM [Concomitant]
     Route: 047

REACTIONS (5)
  - CONVULSION [None]
  - EYE DISORDER [None]
  - FRONTAL LOBE EPILEPSY [None]
  - RED BLOOD CELL SEDIMENTATION RATE INCREASED [None]
  - TIC [None]
